FAERS Safety Report 10231829 (Version 1)
Quarter: 2014Q2

REPORT INFORMATION
  Report Type: Report from Study
  Country: US (occurrence: US)
  Receive Date: 20140612
  Receipt Date: 20140612
  Transmission Date: 20141212
  Serious: Yes (Other)
  Sender: FDA-Public Use
  Company Number: US-ROCHE-1416578

PATIENT
  Sex: Male
  Weight: 16.4 kg

DRUGS (4)
  1. CELLCEPT [Suspect]
     Indication: RENAL TRANSPLANT
     Route: 048
  2. AMLODIPINE [Concomitant]
     Route: 048
  3. ATENOLOL [Concomitant]
     Route: 048
  4. PROGRAF [Concomitant]
     Route: 048

REACTIONS (3)
  - Failure to thrive [Unknown]
  - Inguinal hernia [Unknown]
  - Hypertension [Unknown]
